FAERS Safety Report 4405199-9 (Version None)
Quarter: 2004Q3

REPORT INFORMATION
  Report Type: 
  Country: None (occurrence: None)
  Receive Date: 20040722
  Receipt Date: 20040722
  Transmission Date: 20050211
  Serious: No
  Sender: FDA-Public Use
  Company Number: None

PATIENT
  Sex: Female
  Weight: 80 kg

DRUGS (1)
  1. PROVIGIL [Suspect]
     Indication: MAJOR DEPRESSION
     Dosage: PO 1 PO QAM
     Route: 048
     Dates: start: 20040614, end: 20040701

REACTIONS (1)
  - TARDIVE DYSKINESIA [None]
